FAERS Safety Report 8481205-X (Version None)
Quarter: 2012Q3

REPORT INFORMATION
  Report Type: 
  Country: None (occurrence: None)
  Receive Date: 20120702
  Receipt Date: 20120621
  Transmission Date: 20120928
  Serious: Yes (Other)
  Sender: FDA-Public Use
  Company Number: US-ASTRAZENECA-2011SE69717

PATIENT
  Age: 85 Year
  Sex: Female

DRUGS (2)
  1. CRESTOR [Suspect]
     Route: 048
  2. METFORMIN HCL [Concomitant]

REACTIONS (7)
  - CEREBROVASCULAR ACCIDENT [None]
  - HEART RATE IRREGULAR [None]
  - DIABETES MELLITUS [None]
  - MALAISE [None]
  - ADVERSE EVENT [None]
  - ATRIAL FIBRILLATION [None]
  - NERVOUSNESS [None]
